FAERS Safety Report 18290856 (Version 2)
Quarter: 2020Q3

REPORT INFORMATION
  Report Type: Report from Study
  Country: PK (occurrence: PK)
  Receive Date: 20200921
  Receipt Date: 20200929
  Transmission Date: 20201103
  Serious: Yes (Other)
  Sender: FDA-Public Use
  Company Number: NVSC2020PK250445

PATIENT
  Age: 71 Year
  Sex: Male

DRUGS (1)
  1. VOTRIENT [Suspect]
     Active Substance: PAZOPANIB HYDROCHLORIDE
     Indication: LUNG NEOPLASM MALIGNANT
     Dosage: 200 MG, QD
     Route: 048
     Dates: start: 20190502, end: 20190830

REACTIONS (6)
  - Metastases to bone [Unknown]
  - Neoplasm progression [Not Recovered/Not Resolved]
  - Lung neoplasm [Not Recovered/Not Resolved]
  - Cough [Unknown]
  - Product use in unapproved indication [Unknown]
  - Asthenia [Unknown]

NARRATIVE: CASE EVENT DATE: 20200422
